FAERS Safety Report 10754228 (Version 1)
Quarter: 2015Q1

REPORT INFORMATION
  Report Type: Spontaneous
  Country: US (occurrence: US)
  Receive Date: 20150202
  Receipt Date: 20150202
  Transmission Date: 20150721
  Serious: No
  Sender: FDA-Public Use
  Company Number: US-LEO PHARMA-232111

PATIENT
  Sex: Male

DRUGS (1)
  1. PICATO [Suspect]
     Active Substance: INGENOL MEBUTATE
     Indication: ACTINIC KERATOSIS

REACTIONS (5)
  - Application site pain [Unknown]
  - Application site pustules [Unknown]
  - Application site exfoliation [Unknown]
  - Incorrect drug administration duration [Unknown]
  - Insomnia [Unknown]
